FAERS Safety Report 10149376 (Version 3)
Quarter: 2016Q2

REPORT INFORMATION
  Report Type: Report from Study
  Country: CN (occurrence: CN)
  Receive Date: 20140502
  Receipt Date: 20160421
  Transmission Date: 20160815
  Serious: Yes (Hospitalization, Other)
  Sender: FDA-Public Use
  Company Number: CN-ASTELLAS-2014US004467

PATIENT
  Age: 61 Year
  Sex: Male

DRUGS (1)
  1. ERLOTINIB [Suspect]
     Active Substance: ERLOTINIB
     Indication: NON-SMALL CELL LUNG CANCER
     Route: 048
     Dates: start: 20110501

REACTIONS (6)
  - Cholangitis acute [Unknown]
  - Cholecystitis [Unknown]
  - Cholelithiasis [Recovering/Resolving]
  - Abdominal pain upper [Unknown]
  - Vomiting [Unknown]
  - Abdominal pain upper [Unknown]

NARRATIVE: CASE EVENT DATE: 20140416
